FAERS Safety Report 25330355 (Version 1)
Quarter: 2025Q2

REPORT INFORMATION
  Report Type: Spontaneous
  Country: US (occurrence: None)
  Receive Date: 20250516
  Receipt Date: 20250516
  Transmission Date: 20250716
  Serious: Yes (Death)
  Sender: FDA-CTU
  Company Number: None

PATIENT
  Age: 4 Week
  Sex: Female
  Weight: 3.3 kg

DRUGS (1)
  1. BEYFORTUS [Suspect]
     Active Substance: NIRSEVIMAB-ALIP
     Indication: Prophylaxis
     Route: 030
     Dates: start: 20241210, end: 20241210

REACTIONS (1)
  - Death [None]

NARRATIVE: CASE EVENT DATE: 20241210
